FAERS Safety Report 14318783 (Version 1)
Quarter: 2017Q4

REPORT INFORMATION
  Report Type: Spontaneous
  Country: CH (occurrence: CH)
  Receive Date: 20171222
  Receipt Date: 20171222
  Transmission Date: 20180321
  Serious: Yes (Other)
  Sender: FDA-Public Use
  Company Number: CH-BRACCO-2017CH05821

PATIENT
  Age: 70 Year
  Sex: Female

DRUGS (5)
  1. CITALOPRAM SANDOZ FILMTABLETTEN [Concomitant]
     Dosage: 20 MG, QD
     Route: 048
     Dates: start: 20170828
  2. NOVALGIN [Concomitant]
     Active Substance: METAMIZOLE SODIUM
     Dosage: IF NECESSARY
     Route: 048
     Dates: start: 20170828
  3. ESOMEP MUPS [Concomitant]
     Active Substance: OMEPRAZOLE
     Dosage: 40 MG, QD
     Route: 048
     Dates: start: 20170828
  4. IOPAMIRO [Suspect]
     Active Substance: IOPAMIDOL
     Indication: DIAGNOSTIC PROCEDURE
     Dates: start: 20170828, end: 20170828
  5. LIDOCAIN [Suspect]
     Active Substance: LIDOCAINE
     Indication: TRIGEMINAL NEURALGIA
     Dosage: 100 MG
     Dates: start: 20170828, end: 20170828

REACTIONS (4)
  - Vertigo [Recovering/Resolving]
  - Hypertension [Recovering/Resolving]
  - Paraesthesia [Recovering/Resolving]
  - Nausea [Recovering/Resolving]

NARRATIVE: CASE EVENT DATE: 20170828
